FAERS Safety Report 24435592 (Version 1)
Quarter: 2024Q4

REPORT INFORMATION
  Report Type: Spontaneous
  Country: CN (occurrence: CN)
  Receive Date: 20241015
  Receipt Date: 20241015
  Transmission Date: 20250114
  Serious: Yes (Other)
  Sender: NOVO NORDISK
  Company Number: CN-NOVOPROD-1295878

PATIENT
  Age: 61 Year
  Sex: Female
  Weight: 75 kg

DRUGS (2)
  1. INSULIN ASPART [Suspect]
     Active Substance: INSULIN ASPART
     Indication: Type 2 diabetes mellitus
     Dosage: 56 IU, QD(32 U IN THE MORNING AND 24 U IN THE EVENING)
  2. GLICLAZIDE [Concomitant]
     Active Substance: GLICLAZIDE
     Indication: Type 2 diabetes mellitus
     Dosage: 1-2 TABLETS
     Route: 048

REACTIONS (2)
  - Maculopathy [Not Recovered/Not Resolved]
  - Blood glucose increased [Unknown]
